FAERS Safety Report 24682044 (Version 2)
Quarter: 2025Q1

REPORT INFORMATION
  Report Type: Spontaneous
  Country: US (occurrence: US)
  Receive Date: 20241130
  Receipt Date: 20250218
  Transmission Date: 20250409
  Serious: Yes (Hospitalization, Other)
  Sender: SANOFI AVENTIS
  Company Number: US-SA-2024SA351365

PATIENT
  Age: 9 Year
  Sex: Male

DRUGS (1)
  1. DUPIXENT [Suspect]
     Active Substance: DUPILUMAB
     Indication: Product used for unknown indication
     Dosage: 300 MG, Q4W
     Route: 058
     Dates: start: 20240430

REACTIONS (2)
  - Osteomyelitis [Recovered/Resolved]
  - Staphylococcus test positive [Unknown]

NARRATIVE: CASE EVENT DATE: 20241101
